FAERS Safety Report 5565845-3 (Version None)
Quarter: 2007Q4

REPORT INFORMATION
  Report Type: 
  Country: None (occurrence: None)
  Receive Date: 20071213
  Receipt Date: 20071203
  Transmission Date: 20080405
  Serious: Yes (Hospitalization, Other)
  Sender: FDA-Public Use
  Company Number: GXKR2007FR10345

PATIENT
  Age: 48 Year
  Sex: Female

DRUGS (1)
  1. TRIAMCINOLONE [Suspect]
     Dosage: 4 MG, INTRAVITREAL IN; ONCE/SINGLE, INTRAVITREAL IN; ONCE/SINGLE, INTRAVITREAL IN
     Route: 031

REACTIONS (2)
  - MACULAR HOLE [None]
  - VITRECTOMY [None]
